FAERS Safety Report 7222005-8 (Version None)
Quarter: 2011Q1

REPORT INFORMATION
  Report Type: 
  Country: None (occurrence: None)
  Receive Date: 20110112
  Receipt Date: 20101231
  Transmission Date: 20110831
  Serious: Yes (Death, Life-Threatening, Hospitalization, Other)
  Sender: FDA-Public Use
  Company Number: FR-ELI_LILLY_AND_COMPANY-FR201012006680

PATIENT
  Sex: Male

DRUGS (9)
  1. LOVENOX [Concomitant]
     Dosage: 75 MG, DAILY (1/D)
     Route: 058
     Dates: start: 20100828
  2. HYPNOVEL [Concomitant]
     Dates: start: 20100828
  3. TAHOR [Concomitant]
     Route: 048
     Dates: start: 20100828
  4. KARDEGIC [Concomitant]
     Dosage: 75 MG, DAILY (1/D)
     Route: 048
     Dates: start: 20100828
  5. SUFENTANIL CITRATE [Concomitant]
     Dates: start: 20100828
  6. NEXIUM [Concomitant]
     Route: 048
     Dates: start: 20100828
  7. EFFIENT [Suspect]
     Dosage: 10 MG, DAILY (1/D)
     Route: 048
     Dates: start: 20100828
  8. TRIATEC [Concomitant]
     Route: 048
     Dates: start: 20100828
  9. MORPHINE [Concomitant]
     Dates: start: 20100828

REACTIONS (10)
  - DEATH [None]
  - VESSEL PUNCTURE SITE HAEMORRHAGE [None]
  - HAEMOPTYSIS [None]
  - MULTI-ORGAN FAILURE [None]
  - CARDIAC ARREST [None]
  - EJECTION FRACTION DECREASED [None]
  - HAEMODYNAMIC INSTABILITY [None]
  - HAEMATEMESIS [None]
  - LUNG INFECTION [None]
  - VENTRICULAR TACHYCARDIA [None]
